FAERS Safety Report 21930250 (Version 7)
Quarter: 2023Q2

REPORT INFORMATION
  Report Type: Report from Study
  Country: US (occurrence: US)
  Receive Date: 20230131
  Receipt Date: 20230612
  Transmission Date: 20230722
  Serious: Yes (Hospitalization)
  Sender: FDA-Public Use
  Company Number: US-JNJFOC-20230111388

PATIENT
  Age: 65 Year
  Sex: Female
  Weight: 79.1 kg

DRUGS (5)
  1. EPOPROSTENOL SODIUM [Suspect]
     Active Substance: EPOPROSTENOL SODIUM
     Indication: Pulmonary hypertension
     Route: 042
  2. EPOPROSTENOL SODIUM [Suspect]
     Active Substance: EPOPROSTENOL SODIUM
     Route: 042
  3. TADALAFIL [Concomitant]
     Active Substance: TADALAFIL
  4. ELIQUIS [Concomitant]
     Active Substance: APIXABAN
  5. DILTIAZEM [Concomitant]
     Active Substance: DILTIAZEM

REACTIONS (10)
  - Drug intolerance [Unknown]
  - Dyspnoea [Unknown]
  - Cardiac disorder [Unknown]
  - Pulmonary hypertension [Unknown]
  - Dizziness [Unknown]
  - Dizziness [Unknown]
  - Heart rate increased [Unknown]
  - Back pain [Not Recovered/Not Resolved]
  - Blood potassium decreased [Unknown]
  - Joint swelling [Unknown]

NARRATIVE: CASE EVENT DATE: 20230101
